FAERS Safety Report 7636042-2 (Version None)
Quarter: 2011Q3

REPORT INFORMATION
  Report Type: 
  Country: None (occurrence: None)
  Receive Date: 20110719
  Receipt Date: 20110706
  Transmission Date: 20111222
  Serious: Yes (Other)
  Sender: FDA-Public Use
  Company Number: WAES 1107DNK00003

PATIENT

DRUGS (4)
  1. CAP STAVUDINE [Suspect]
     Indication: HIV INFECTION
     Dosage: PO
     Route: 048
  2. TAB ABACAVUR SYKFATE [Suspect]
     Indication: HIV INFECTION
     Dosage: PO
     Route: 048
  3. CAP INDINAVIR [Suspect]
     Indication: HIV INFECTION
     Dosage: PO
     Route: 048
  4. TAB NEVIRAPINE [Suspect]
     Indication: HIV INFECTION
     Dosage: PO
     Route: 048

REACTIONS (3)
  - DRUG INEFFECTIVE [None]
  - VIROLOGIC FAILURE [None]
  - VIRAL MUTATION IDENTIFIED [None]
